FAERS Safety Report 5830798-7 (Version None)
Quarter: 2008Q3

REPORT INFORMATION
  Report Type: 
  Country: None (occurrence: None)
  Receive Date: 20080801
  Receipt Date: 20071128
  Transmission Date: 20090109
  Serious: No
  Sender: FDA-Public Use
  Company Number: US-BRISTOL-MYERS SQUIBB COMPANY-13997200

PATIENT
  Age: 84 Year
  Sex: Female
  Weight: 68 kg

DRUGS (14)
  1. COUMADIN [Suspect]
     Indication: THROMBOSIS
     Dosage: PRESENT 12.5MG.
     Dates: start: 19920101
  2. LEVOTHYROXINE SODIUM [Concomitant]
  3. NEXIUM [Concomitant]
  4. FUROSEMIDE [Concomitant]
  5. CAPTOPRIL [Concomitant]
  6. PLENDIL [Concomitant]
  7. PREDNISONE [Concomitant]
  8. LIPITOR [Concomitant]
  9. IMURAN [Concomitant]
  10. VITAMIN D [Concomitant]
  11. CENTRUM [Concomitant]
  12. TUMS [Concomitant]
  13. TYLENOL (CAPLET) [Concomitant]
  14. DIGITEK [Concomitant]

REACTIONS (1)
  - INTERNATIONAL NORMALISED RATIO DECREASED [None]
